FAERS Safety Report 6079377-X (Version None)
Quarter: 2009Q1

REPORT INFORMATION
  Report Type: 
  Country: None (occurrence: None)
  Receive Date: 20090216
  Receipt Date: 20090213
  Transmission Date: 20090719
  Serious: Yes (Other)
  Sender: FDA-Public Use
  Company Number: US-ASTRAZENECA-2009UW04137

PATIENT
  Sex: Female
  Weight: 78.5 kg

DRUGS (1)
  1. CRESTOR [Suspect]
     Route: 048

REACTIONS (4)
  - BLOOD POTASSIUM INCREASED [None]
  - HIGH DENSITY LIPOPROTEIN DECREASED [None]
  - RENAL DISORDER [None]
  - RENAL IMPAIRMENT [None]
